FAERS Safety Report 9540464 (Version 1)
Quarter: 2013Q3

REPORT INFORMATION
  Report Type: Spontaneous
  Country: BR (occurrence: BR)
  Receive Date: 20130920
  Receipt Date: 20130920
  Transmission Date: 20140515
  Serious: Yes (Hospitalization)
  Sender: FDA-Public Use
  Company Number: BR-ELI_LILLY_AND_COMPANY-BR201309005556

PATIENT
  Age: 88 Year
  Sex: Female
  Weight: 66 kg

DRUGS (5)
  1. HUMALOG [Suspect]
     Indication: TYPE 2 DIABETES MELLITUS
     Dosage: 18 IU, EACH MORNING
     Route: 058
     Dates: start: 2010
  2. HUMALOG [Suspect]
     Dosage: 22 IU, QD
     Route: 058
     Dates: start: 2010
  3. HUMALOG [Suspect]
     Dosage: 18 IU, EACH EVENING
     Route: 058
     Dates: start: 2010
  4. PROLOPA HBS [Concomitant]
     Indication: PARKINSON^S DISEASE
     Dosage: 125 MG, BID
     Route: 065
     Dates: start: 2008
  5. REPARIL-GEL [Concomitant]
     Indication: HAEMATOMA
     Dosage: UNK, UNKNOWN
     Route: 065

REACTIONS (5)
  - Syncope [Not Recovered/Not Resolved]
  - Hyperglycaemia [Not Recovered/Not Resolved]
  - Blood pressure decreased [Not Recovered/Not Resolved]
  - Blood glucose abnormal [Not Recovered/Not Resolved]
  - Injection site haematoma [Not Recovered/Not Resolved]
